FAERS Safety Report 17264183 (Version 1)
Quarter: 2019Q4

REPORT INFORMATION
  Report Type: Spontaneous
  Country: US (occurrence: US)
  Receive Date: 20191219
  Receipt Date: 20191219
  Transmission Date: 20200122
  Serious: No
  Sender: FDA-Public Use
  Company Number: None

PATIENT
  Age: 58 Year
  Sex: Female

DRUGS (1)
  1. HIZENTRA [Suspect]
     Active Substance: HUMAN IMMUNOGLOBULIN G
     Dosage: ?          OTHER FREQUENCY:UNKNOWN;?
     Route: 058
     Dates: start: 201907

REACTIONS (5)
  - Feeling drunk [None]
  - Dysarthria [None]
  - Anaphylactic reaction [None]
  - Oedema peripheral [None]
  - Injection site erythema [None]

NARRATIVE: CASE EVENT DATE: 20191219
